FAERS Safety Report 6388513-7 (Version None)
Quarter: 2009Q4

REPORT INFORMATION
  Report Type: 
  Country: None (occurrence: None)
  Receive Date: 20091005
  Receipt Date: 20091001
  Transmission Date: 20100525
  Serious: Yes (Death, Life-Threatening)
  Sender: FDA-Public Use
  Company Number: B0595478A

PATIENT
  Age: 44 Year
  Sex: Male
  Weight: 98 kg

DRUGS (1)
  1. ARIXTRA [Suspect]
     Indication: THROMBOSIS PROPHYLAXIS
     Dosage: 2.5MG PER DAY
     Route: 058
     Dates: start: 20090912, end: 20090926

REACTIONS (7)
  - ALTERED STATE OF CONSCIOUSNESS [None]
  - CARDIAC ARREST [None]
  - HYPOTENSION [None]
  - HYPOXIA [None]
  - PULMONARY EMBOLISM [None]
  - TACHYCARDIA [None]
  - TACHYPNOEA [None]
